FAERS Safety Report 19806515 (Version 2)
Quarter: 2021Q3

REPORT INFORMATION
  Report Type: Report from Study
  Country: US (occurrence: US)
  Receive Date: 20210908
  Receipt Date: 20210928
  Transmission Date: 20211014
  Serious: Yes (Hospitalization, Other)
  Sender: FDA-Public Use
  Company Number: US-EXELIXIS-CABO-21042727

PATIENT
  Age: 76 Year
  Sex: Female

DRUGS (4)
  1. CABOMETYX [Suspect]
     Active Substance: CABOZANTINIB S-MALATE
     Dosage: 20 MG, QD
  2. METOPROLOL. [Suspect]
     Active Substance: METOPROLOL
     Indication: BLOOD PRESSURE INCREASED
     Dosage: 25 MG, BID
  3. METOPROLOL. [Suspect]
     Active Substance: METOPROLOL
     Dosage: 50 MG, BID
  4. CABOMETYX [Suspect]
     Active Substance: CABOZANTINIB S-MALATE
     Indication: RENAL CELL CARCINOMA
     Dosage: 20 MG, QD
     Dates: start: 20210701

REACTIONS (18)
  - Blood thyroid stimulating hormone abnormal [Unknown]
  - Dysphonia [Not Recovered/Not Resolved]
  - Asthenia [Recovering/Resolving]
  - Sinus congestion [Not Recovered/Not Resolved]
  - Thyroid hormones decreased [Unknown]
  - Madarosis [Unknown]
  - Speech disorder [Unknown]
  - Diabetes mellitus [Unknown]
  - Rash [Recovering/Resolving]
  - Dysgeusia [Unknown]
  - Cerebrovascular accident [Unknown]
  - Alopecia [Unknown]
  - Hypertension [Not Recovered/Not Resolved]
  - Muscle spasms [Recovering/Resolving]
  - Blindness [Unknown]
  - Pain in extremity [Recovering/Resolving]
  - Upper-airway cough syndrome [Not Recovered/Not Resolved]
  - Tinnitus [Unknown]

NARRATIVE: CASE EVENT DATE: 202107
